FAERS Safety Report 6289353-X (Version None)
Quarter: 2009Q3

REPORT INFORMATION
  Report Type: 
  Country: None (occurrence: None)
  Receive Date: 20090728
  Receipt Date: 20090728
  Transmission Date: 20100115
  Serious: Yes (Other)
  Sender: FDA-Public Use
  Company Number: None

PATIENT
  Age: 57 Year
  Sex: Female
  Weight: 68.9467 kg

DRUGS (1)
  1. LEVAQUIN [Suspect]
     Indication: POST PROCEDURAL INFECTION
     Dosage: 750 MG 1 A DAY PO
     Route: 048
     Dates: start: 20090717, end: 20090721

REACTIONS (4)
  - ARTHRALGIA [None]
  - GAIT DISTURBANCE [None]
  - MUSCULOSKELETAL STIFFNESS [None]
  - PAIN IN EXTREMITY [None]
